FAERS Safety Report 5471951-4 (Version None)
Quarter: 2007Q3

REPORT INFORMATION
  Report Type: 
  Country: None (occurrence: None)
  Receive Date: 20070928
  Receipt Date: 20070914
  Transmission Date: 20080115
  Serious: Yes (Hospitalization)
  Sender: FDA-Public Use
  Company Number: EE-GENENTECH-248428

PATIENT
  Sex: Male
  Weight: 66 kg

DRUGS (3)
  1. BEVACIZUMAB [Suspect]
     Indication: NON-SMALL CELL LUNG CANCER
     Dosage: 960 MG, UNK
     Route: 042
     Dates: start: 20070806
  2. PACLITAXEL [Suspect]
     Indication: NON-SMALL CELL LUNG CANCER
     Dosage: 290 MG, UNK
     Route: 042
     Dates: start: 20070806, end: 20070827
  3. CARBOPLATIN [Suspect]
     Indication: NON-SMALL CELL LUNG CANCER
     Dosage: 600 MG, UNK
     Route: 042
     Dates: start: 20070806

REACTIONS (4)
  - ANOREXIA [None]
  - DIARRHOEA [None]
  - FATIGUE [None]
  - PYREXIA [None]
